FAERS Safety Report 7618259 (Version 3)
Quarter: 2013Q4

REPORT INFORMATION
  Report Type: Spontaneous
  Country: US (occurrence: US)
  Receive Date: 20101006
  Receipt Date: 20131212
  Transmission Date: 20140711
  Serious: Yes (Hospitalization, Other)
  Sender: FDA-Public Use
  Company Number: US-BAYER-201035675NA

PATIENT
  Age: 16 Year
  Sex: Female
  Weight: 54.42 kg

DRUGS (9)
  1. YAZ [Suspect]
     Indication: ACNE
     Dosage: UNK UNK, QD
     Route: 048
     Dates: start: 20080129, end: 200806
  2. YAZ [Suspect]
     Indication: ACNE
     Dosage: UNK, QD
     Dates: start: 200904, end: 200906
  3. YASMIN [Suspect]
     Indication: PRODUCT USED FOR UNKNOWN INDICATION
     Dosage: UNK UNK, UNK
     Route: 048
     Dates: start: 20080129
  4. MINOCYCLINE [Concomitant]
     Dosage: 100 MG, UNK
     Route: 048
  5. TRETINOIN [Concomitant]
     Dosage: UNK %, UNK
     Route: 003
  6. DIFFERIN [Concomitant]
     Dosage: 0.1 UNK, UNK
     Route: 003
  7. AMOXICILLIN [Concomitant]
     Dosage: 500 MG, UNK
  8. TRI-SPRINTEC [Concomitant]
  9. IBUPROFEN [Concomitant]

REACTIONS (4)
  - Gallbladder disorder [None]
  - Pancreatitis chronic [None]
  - Cholecystitis chronic [None]
  - Biliary dyskinesia [None]
